FAERS Safety Report 21918630 (Version 2)
Quarter: 2023Q1

REPORT INFORMATION
  Report Type: Other
  Country: DE (occurrence: None)
  Receive Date: 20230127
  Receipt Date: 20230131
  Transmission Date: 20230417
  Serious: Yes (Hospitalization)
  Sender: FDA-Public Use
  Company Number: DE-ROCHE-3270741

PATIENT
  Age: 16 Year
  Sex: Female
  Weight: 61 kg

DRUGS (4)
  1. TOCILIZUMAB [Suspect]
     Active Substance: TOCILIZUMAB
     Indication: Juvenile idiopathic arthritis
     Route: 058
     Dates: start: 20210921, end: 20221020
  2. METHOTREXATE [Suspect]
     Active Substance: METHOTREXATE
     Indication: Juvenile idiopathic arthritis
     Route: 058
     Dates: start: 20191203
  3. ACETAMINOPHEN [Concomitant]
     Active Substance: ACETAMINOPHEN
     Indication: Juvenile idiopathic arthritis
     Route: 048
     Dates: start: 20220505
  4. TRAMADOL [Concomitant]
     Active Substance: TRAMADOL
     Indication: Depression
     Route: 048
     Dates: start: 20220801

REACTIONS (2)
  - Juvenile idiopathic arthritis [Recovering/Resolving]
  - Drug ineffective [Unknown]

NARRATIVE: CASE EVENT DATE: 20220801
